FAERS Safety Report 6533967-6 (Version None)
Quarter: 2010Q1

REPORT INFORMATION
  Report Type: 
  Country: None (occurrence: None)
  Receive Date: 20100112
  Receipt Date: 20100104
  Transmission Date: 20100710
  Serious: Yes (Other)
  Sender: FDA-Public Use
  Company Number: TW-ALLERGAN-1000120US

PATIENT
  Age: 26 Year
  Sex: Female

DRUGS (7)
  1. OPHTHETIC [Suspect]
     Indication: EYE PAIN
     Dosage: UNK
     Route: 047
  2. MITOMYCIN [Concomitant]
     Indication: SURGERY
     Dosage: UNK
  3. CIPROFLOXACIN [Concomitant]
     Indication: POSTOPERATIVE CARE
     Dosage: UNK
     Route: 047
  4. FLUOROMETHOLONE UNSPEC [Concomitant]
     Indication: POSTOPERATIVE CARE
     Dosage: UNK
     Route: 047
  5. AMIKACIN [Concomitant]
     Indication: CORNEAL EPITHELIUM DEFECT
     Dosage: UNK
     Route: 047
  6. DICLOFENAC SODIUM [Concomitant]
     Indication: CORNEAL EPITHELIUM DEFECT
     Dosage: UNK
     Route: 047
  7. PREDNISOLONE [Concomitant]
     Dosage: UNK
     Route: 047

REACTIONS (2)
  - CHEMICAL EYE INJURY [None]
  - DRUG ABUSE [None]
